FAERS Safety Report 5167694-7 (Version None)
Quarter: 2006Q4

REPORT INFORMATION
  Report Type: 
  Country: None (occurrence: None)
  Receive Date: 20061201
  Receipt Date: 20061201
  Transmission Date: 20070319
  Serious: Yes (Other)
  Sender: FDA-Public Use
  Company Number: None

PATIENT
  Age: 59 Year
  Sex: Female
  Weight: 48 kg

DRUGS (1)
  1. SEROQUEL [Suspect]
     Indication: AGITATION
     Dosage: 50 MG QHS  PO    , 50 MG Q 4 H PRN PO
     Route: 048
     Dates: start: 20060828, end: 20060831

REACTIONS (1)
  - NEUROLEPTIC MALIGNANT SYNDROME [None]
